FAERS Safety Report 8523989-8 (Version None)
Quarter: 2012Q3

REPORT INFORMATION
  Report Type: 
  Country: None (occurrence: None)
  Receive Date: 20120720
  Receipt Date: 20120712
  Transmission Date: 20120928
  Serious: Yes (Life-Threatening, Hospitalization, Other)
  Sender: FDA-Public Use
  Company Number: US-ABBOTT-12P-163-0952040-00

PATIENT
  Sex: Female
  Weight: 71 kg

DRUGS (9)
  1. ESCITALOPRAM [Concomitant]
     Indication: TEMPOROMANDIBULAR JOINT SYNDROME
     Dates: start: 20090601
  2. SULFASALAZINE [Concomitant]
     Indication: JUVENILE ARTHRITIS
     Dates: start: 20100727
  3. TOPAMAX [Concomitant]
     Dates: start: 20110221
  4. DEPO-PROVERA [Concomitant]
     Indication: CONTRACEPTION
     Dosage: 1 INJECTION
     Dates: start: 20111001
  5. HUMIRA [Suspect]
     Indication: JUVENILE ARTHRITIS
     Route: 058
     Dates: start: 20100304, end: 20120628
  6. SULFASALAZINE [Concomitant]
     Indication: PAIN
  7. TOPAMAX [Concomitant]
     Indication: HEADACHE
     Dates: start: 20100727, end: 20110221
  8. DICLOFENAC [Concomitant]
     Indication: PAIN
     Dates: start: 20100310
  9. TRAMADOL HYDROCHLORIDE [Concomitant]
     Indication: PAIN
     Dates: start: 20100913, end: 20120629

REACTIONS (1)
  - SUICIDE ATTEMPT [None]
